FAERS Safety Report 11283359 (Version 1)
Quarter: 2015Q3

REPORT INFORMATION
  Report Type: Spontaneous
  Country: GB (occurrence: GB)
  Receive Date: 20150720
  Receipt Date: 20150720
  Transmission Date: 20151125
  Serious: Yes (Other)
  Sender: FDA-Public Use
  Company Number: GB-TEVA-577816ACC

PATIENT
  Age: 66 Year
  Sex: Female
  Weight: 73 kg

DRUGS (2)
  1. HOMEOPATHIC MEDICATION [Concomitant]
     Indication: NEURALGIA
     Dosage: 200C X 3/DAY
  2. GABAPENTIN. [Suspect]
     Active Substance: GABAPENTIN
     Indication: NEUROPATHY PERIPHERAL
     Dates: start: 20150620, end: 20150623

REACTIONS (2)
  - Pancreatitis acute [Unknown]
  - Abdominal discomfort [Recovering/Resolving]
